FAERS Safety Report 16824560 (Version 1)
Quarter: 2019Q3

REPORT INFORMATION
  Report Type: Report from Study
  Country: PL (occurrence: PL)
  Receive Date: 20190918
  Receipt Date: 20190918
  Transmission Date: 20191005
  Serious: Yes (Death, Life-Threatening, Hospitalization, Other)
  Sender: FDA-Public Use
  Company Number: PHHO2016PL017826

PATIENT
  Age: 65 Year
  Sex: Male
  Weight: 60 kg

DRUGS (19)
  1. NONPRES [Suspect]
     Active Substance: EPLERENONE
     Indication: CARDIAC FAILURE CHRONIC
     Dosage: UNK
     Route: 065
  2. LCZ696 [Suspect]
     Active Substance: SACUBITRIL\VALSARTAN
     Indication: CARDIAC FAILURE
     Dosage: 200 MG, BID
     Route: 048
     Dates: start: 20160509
  3. LCZ696 [Suspect]
     Active Substance: SACUBITRIL\VALSARTAN
     Dosage: 200 MG, BID
     Route: 048
     Dates: start: 20161212
  4. PLACEBO [Suspect]
     Active Substance: UNSPECIFIED INGREDIENT
     Dosage: UNK
     Route: 048
     Dates: start: 20170221
  5. ACARD [Concomitant]
     Active Substance: ASPIRIN
     Indication: CORONARY ARTERY DISEASE
     Dosage: 75 MG, BID
     Route: 048
     Dates: start: 20151116
  6. POLOCARD [Concomitant]
     Active Substance: ASPIRIN
     Indication: CORONARY ARTERY DISEASE
     Dosage: 75 MG, QD
     Route: 048
     Dates: start: 20151116
  7. PREDUCTAL [Concomitant]
     Active Substance: TRIMETAZIDINE DIHYDROCHLORIDE
     Indication: CORONARY ARTERY DISEASE
     Dosage: 35 MG, BID
     Route: 048
     Dates: start: 20151203
  8. PLAVIX [Concomitant]
     Active Substance: CLOPIDOGREL BISULFATE
     Indication: CORONARY ARTERY DISEASE
     Dosage: 75 MG, QD
     Route: 048
     Dates: start: 20151203
  9. ROSWERA [Concomitant]
     Active Substance: ROSUVASTATIN
     Dosage: 30 MG, BID
     Route: 048
     Dates: start: 20161212
  10. TORASEMID [Concomitant]
     Active Substance: TORSEMIDE
     Indication: CARDIAC FAILURE CHRONIC
     Dosage: 10 MG, QD
     Route: 048
     Dates: start: 20161210, end: 20170207
  11. NEDAL [Concomitant]
     Active Substance: NEBIVOLOL HYDROCHLORIDE
     Indication: CARDIAC FAILURE CHRONIC
     Dosage: 2.5 MG, QD
     Route: 048
     Dates: start: 20151116, end: 20161202
  12. LCZ696 [Suspect]
     Active Substance: SACUBITRIL\VALSARTAN
     Dosage: 200 MG, BID
     Route: 048
     Dates: start: 20170221
  13. PLACEBO [Suspect]
     Active Substance: UNSPECIFIED INGREDIENT
     Indication: CARDIAC FAILURE
     Dosage: UNK
     Route: 048
     Dates: start: 20160509
  14. PLACEBO [Suspect]
     Active Substance: UNSPECIFIED INGREDIENT
     Dosage: UNK
     Route: 048
     Dates: start: 20170403, end: 20170518
  15. METOPROLOL TARTRATE. [Concomitant]
     Active Substance: METOPROLOL TARTRATE
     Indication: CARDIAC FAILURE CHRONIC
     Dosage: 25 MG, BID
     Route: 048
     Dates: start: 20161207, end: 20170207
  16. LCZ696 [Suspect]
     Active Substance: SACUBITRIL\VALSARTAN
     Dosage: 200 MG, BID
     Route: 048
     Dates: start: 20170403, end: 20170518
  17. PLACEBO [Suspect]
     Active Substance: UNSPECIFIED INGREDIENT
     Dosage: UNK
     Route: 048
     Dates: start: 20161212
  18. ROSWERA [Concomitant]
     Active Substance: ROSUVASTATIN
     Indication: CORONARY ARTERY DISEASE
     Dosage: 30 MG, QD
     Route: 048
     Dates: start: 20151203, end: 20161130
  19. SUVARDIO [Concomitant]
     Active Substance: ROSUVASTATIN CALCIUM
     Indication: CORONARY ARTERY DISEASE
     Dosage: 20 MG, QD
     Route: 048
     Dates: start: 20161130, end: 20161211

REACTIONS (7)
  - Chronic obstructive pulmonary disease [Not Recovered/Not Resolved]
  - Hepatic failure [Not Recovered/Not Resolved]
  - Acute kidney injury [Recovered/Resolved]
  - Cardiac failure chronic [Recovered/Resolved]
  - Chronic obstructive pulmonary disease [Recovered/Resolved]
  - Cardiogenic shock [Fatal]
  - Respiratory failure [Not Recovered/Not Resolved]

NARRATIVE: CASE EVENT DATE: 20161130
